FAERS Safety Report 6873579-8 (Version None)
Quarter: 2010Q3

REPORT INFORMATION
  Report Type: 
  Country: None (occurrence: None)
  Receive Date: 20100723
  Receipt Date: 20090129
  Transmission Date: 20110219
  Serious: No
  Sender: FDA-Public Use
  Company Number: US-PFIZER INC-2009163256

PATIENT
  Sex: Female
  Weight: 143 kg

DRUGS (17)
  1. CHANTIX [Suspect]
     Indication: SMOKING CESSATION THERAPY
     Dosage: UNK
     Dates: start: 20090101
  2. ALL OTHER THERAPEUTIC PRODUCTS [Concomitant]
     Dosage: UNK
  3. BUPRENORPHINE HCL AND NALOXONE HCL [Concomitant]
     Dosage: UNK
  4. CLONIDINE [Concomitant]
     Dosage: UNK
  5. PROTONIX [Concomitant]
     Dosage: UNK
  6. LIPITOR [Concomitant]
     Dosage: UNK
  7. MOTRIN [Concomitant]
     Dosage: UNK
  8. LISINOPRIL [Concomitant]
     Dosage: UNK
  9. RESTORIL [Concomitant]
     Dosage: UNK
  10. BUSPAR [Concomitant]
     Dosage: UNK
  11. MONTELUKAST SODIUM [Concomitant]
     Dosage: UNK
  12. LAMICTAL [Concomitant]
     Dosage: UNK
  13. KLOR-CON [Concomitant]
     Dosage: UNK
  14. SOMA [Concomitant]
     Dosage: UNK
  15. FOLIC ACID [Concomitant]
     Dosage: UNK
  16. PREDNISONE [Concomitant]
     Dosage: UNK
  17. CALCIUM [Concomitant]
     Dosage: UNK

REACTIONS (1)
  - HEART RATE INCREASED [None]
